FAERS Safety Report 19688660 (Version 3)
Quarter: 2024Q4

REPORT INFORMATION
  Report Type: Spontaneous
  Country: DE (occurrence: DE)
  Receive Date: 20210812
  Receipt Date: 20241016
  Transmission Date: 20250114
  Serious: Yes (Death, Other)
  Sender: ORGANON
  Company Number: DE-MLMSERVICE-20200813-2436420-1

PATIENT
  Age: 64 Year
  Sex: Male

DRUGS (5)
  1. MIRTAZAPINE [Suspect]
     Active Substance: MIRTAZAPINE
     Dosage: UNK
  2. COCAINE [Suspect]
     Active Substance: COCAINE
     Dosage: UNK
  3. PIRITRAMIDE [Suspect]
     Active Substance: PIRITRAMIDE
     Dosage: UNK
  4. DOXEPIN HYDROCHLORIDE [Suspect]
     Active Substance: DOXEPIN HYDROCHLORIDE
     Dosage: UNK
  5. TRAMADOL HYDROCHLORIDE [Suspect]
     Active Substance: TRAMADOL HYDROCHLORIDE
     Dosage: UNK

REACTIONS (3)
  - Cardiac failure acute [Fatal]
  - Toxicity to various agents [Unknown]
  - Overdose [Unknown]
